FAERS Safety Report 17946438 (Version 2)
Quarter: 2025Q4

REPORT INFORMATION
  Report Type: Other
  Country: EU (occurrence: EU)
  Receive Date: 20200625
  Receipt Date: 20251014
  Transmission Date: 20260118
  Serious: Yes (Hospitalization, Other)
  Sender: SERVIER
  Company Number: EU-SERVIER-S20005738

PATIENT

DRUGS (21)
  1. ONCASPAR [Suspect]
     Active Substance: PEGASPARGASE
     Indication: B precursor type acute leukaemia
     Dosage: 2500 U/M2, DAY 12 AND DAY 26 OF BLOCK IA
     Route: 042
     Dates: start: 201408, end: 201408
  2. ONCASPAR [Suspect]
     Active Substance: PEGASPARGASE
     Dosage: 2500 U/M2, DAY 12 AND DA8 OF BLOCK IIA
     Route: 042
     Dates: start: 201501, end: 201501
  3. DAUNORUBICIN [Suspect]
     Active Substance: DAUNORUBICIN
     Indication: B precursor type acute leukaemia
     Dosage: 4 DOSES, BLOCK IA
     Route: 065
     Dates: start: 201408, end: 2014
  4. DEXAMETHASONE [Suspect]
     Active Substance: DEXAMETHASONE
     Indication: B precursor type acute leukaemia
     Dosage: 10 MG/M2 DAILY;
     Route: 065
     Dates: start: 201501, end: 201502
  5. CYCLOPHOSPHAMIDE [Suspect]
     Active Substance: CYCLOPHOSPHAMIDE
     Indication: B precursor type acute leukaemia
     Dosage: UNK, BLOCK IB
     Route: 065
  6. VINCRISTINE [Suspect]
     Active Substance: VINCRISTINE
     Indication: B precursor type acute leukaemia
     Dosage: UNK, BLOCK IA
     Route: 065
     Dates: start: 201408, end: 2014
  7. VINCRISTINE [Suspect]
     Active Substance: VINCRISTINE
     Dosage: UNK, BLOCK IIA
     Dates: start: 201501, end: 2015
  8. AMBISOME [Suspect]
     Active Substance: AMPHOTERICIN B
     Indication: Pulmonary mucormycosis
     Dosage: 1 MG/KG DAILY
     Route: 065
  9. AMBISOME [Suspect]
     Active Substance: AMPHOTERICIN B
     Dosage: 10 MG/KG DAILY
     Route: 042
  10. MERCAPTOPURINE [Suspect]
     Active Substance: MERCAPTOPURINE
     Indication: B precursor type acute leukaemia
     Dosage: 1.5 MG/KG DAILY; MAINTENANCE
     Route: 065
     Dates: start: 2014, end: 2014
  11. PREDNISONE [Suspect]
     Active Substance: PREDNISONE
     Indication: B precursor type acute leukaemia
     Dosage: UNK
     Route: 065
     Dates: start: 201408, end: 2014
  12. THIOGUANINE [Suspect]
     Active Substance: THIOGUANINE
     Indication: B precursor type acute leukaemia
     Dosage: UNK
     Route: 065
  13. DOXORUBICIN [Suspect]
     Active Substance: DOXORUBICIN
     Indication: B precursor type acute leukaemia
     Dosage: UNK, BLOCK IIA
     Route: 065
     Dates: start: 201501, end: 201501
  14. METHOTREXATE [Suspect]
     Active Substance: METHOTREXATE
     Indication: B precursor type acute leukaemia
     Dosage: MAINTENANCE: 0.5-0.7 MG/KG ONCE WEEKLY
     Route: 065
     Dates: start: 201408
  15. METHOTREXATE [Suspect]
     Active Substance: METHOTREXATE
     Dosage: UNK, BLOCK IIA
     Route: 037
     Dates: end: 201502
  16. METHOTREXATE [Suspect]
     Active Substance: METHOTREXATE
     Dosage: UNK, BLOCK IB
     Route: 037
  17. CYTARABINE [Suspect]
     Active Substance: CYTARABINE
     Indication: B precursor type acute leukaemia
     Dosage: UNK, BLOCK IB
     Route: 065
  18. POSACONAZOLE [Concomitant]
     Active Substance: POSACONAZOLE
     Indication: Pulmonary mucormycosis
     Dosage: 15 MG/KG DAILY;
     Route: 065
  19. VORICONAZOLE [Concomitant]
     Active Substance: VORICONAZOLE
     Indication: Pulmonary mucormycosis
     Dosage: 8 MG/KG DAILY;
     Route: 065
  20. CASPOFUNGIN [Concomitant]
     Active Substance: CASPOFUNGIN
     Indication: Antifungal treatment
     Dosage: 1 MG/KG, QD
     Route: 065
  21. AMPHOTERICIN B [Concomitant]
     Active Substance: AMPHOTERICIN B
     Indication: Gastric infection
     Dosage: UNK
     Route: 048
     Dates: start: 201408, end: 201612

REACTIONS (3)
  - Aspergillus infection [Recovering/Resolving]
  - Hypokalaemia [Unknown]
  - Pulmonary mucormycosis [Recovered/Resolved]

NARRATIVE: CASE EVENT DATE: 20150201
